FAERS Safety Report 19249406 (Version 1)
Quarter: 2021Q2

REPORT INFORMATION
  Report Type: Spontaneous
  Country: DE (occurrence: DE)
  Receive Date: 20210513
  Receipt Date: 20210513
  Transmission Date: 20210717
  Serious: Yes (Hospitalization)
  Sender: FDA-Public Use
  Company Number: DE-ASTRAZENECA-2021A400526

PATIENT
  Age: 77 Year
  Sex: Female

DRUGS (11)
  1. VENETOCLAX. [Concomitant]
     Active Substance: VENETOCLAX
     Dates: start: 201811
  2. VENETOCLAX. [Concomitant]
     Active Substance: VENETOCLAX
     Dosage: 200.0MG UNKNOWN
     Dates: start: 20190405, end: 20190417
  3. ORAL ANTIBIOTICS [Concomitant]
     Active Substance: UNSPECIFIED INGREDIENT
  4. IBRUTINIB [Concomitant]
     Active Substance: IBRUTINIB
     Dates: start: 20180709, end: 20180725
  5. IBRUTINIB [Concomitant]
     Active Substance: IBRUTINIB
     Dates: start: 20180731, end: 20180801
  6. ACALABRUTINIB. [Suspect]
     Active Substance: ACALABRUTINIB
     Indication: CHRONIC LYMPHOCYTIC LEUKAEMIA
     Route: 048
     Dates: start: 20210114
  7. VENETOCLAX. [Concomitant]
     Active Substance: VENETOCLAX
     Dates: start: 201812
  8. LEUKERAN [Concomitant]
     Active Substance: CHLORAMBUCIL
     Dates: start: 202010
  9. ACETYL SALICYLIC ACID [Concomitant]
     Active Substance: ASPIRIN
  10. BRILIQUE [Suspect]
     Active Substance: TICAGRELOR
     Indication: ACUTE CORONARY SYNDROME
     Route: 048
     Dates: start: 202012
  11. BENDAMUSTINE/RITUXIMAB [Concomitant]
     Dosage: NOV 2011 6 CYCLES
     Dates: start: 201111, end: 20180725

REACTIONS (5)
  - Melaena [Unknown]
  - Arthralgia [Unknown]
  - Cardiac discomfort [Unknown]
  - Contusion [Unknown]
  - Haematoma [Unknown]

NARRATIVE: CASE EVENT DATE: 20210124
